FAERS Safety Report 9868272 (Version 2)
Quarter: 2014Q1

REPORT INFORMATION
  Report Type: Report from Study
  Country: SE (occurrence: SE)
  Receive Date: 20140204
  Receipt Date: 20140204
  Transmission Date: 20141002
  Serious: Yes (Hospitalization)
  Sender: FDA-Public Use
  Company Number: SE-CELGENEUS-150-21880-13120472

PATIENT
  Age: 73 Year
  Sex: Male
  Weight: 85 kg

DRUGS (11)
  1. REVLIMID [Suspect]
     Indication: MYELODYSPLASTIC SYNDROME
     Route: 048
     Dates: start: 20131118, end: 20131203
  2. VIDAZA [Suspect]
     Indication: MYELODYSPLASTIC SYNDROME
     Route: 065
     Dates: start: 20131118, end: 20131203
  3. VIDAZA [Suspect]
     Route: 065
     Dates: start: 20140107
  4. CEFOTAXIME [Concomitant]
     Indication: PYREXIA
     Route: 065
     Dates: start: 20131102, end: 20131105
  5. MENOREN [Concomitant]
     Indication: PYREXIA
     Route: 065
     Dates: start: 20131105, end: 20131108
  6. TAZOCIN [Concomitant]
     Indication: PNEUMONIA
     Route: 065
     Dates: start: 20131108, end: 20131114
  7. EUSAPRIM [Concomitant]
     Indication: PNEUMONIA
     Route: 065
     Dates: start: 20131108, end: 20131111
  8. EUSAPRIM [Concomitant]
     Route: 065
     Dates: start: 20131108, end: 20131111
  9. EUSAPRIM [Concomitant]
     Route: 065
     Dates: start: 20131108, end: 20131111
  10. BACTRIM FORTE [Concomitant]
     Indication: PNEUMONIA
     Dosage: 800/160
     Route: 065
     Dates: start: 20131111
  11. AZITHROMYCIN [Concomitant]
     Indication: PNEUMONIA
     Dosage: 800/160
     Route: 065
     Dates: start: 20131108, end: 20131112

REACTIONS (4)
  - Atrial fibrillation [Recovered/Resolved]
  - Infection [Recovered/Resolved]
  - Syncope [Recovered/Resolved]
  - Confusional state [Recovered/Resolved]
